FAERS Safety Report 7232461-7 (Version None)
Quarter: 2011Q1

REPORT INFORMATION
  Report Type: 
  Country: None (occurrence: None)
  Receive Date: 20110119
  Receipt Date: 20110110
  Transmission Date: 20110831
  Serious: No
  Sender: FDA-Public Use
  Company Number: US-PFIZER INC-2011005870

PATIENT
  Sex: Male
  Weight: 95.238 kg

DRUGS (4)
  1. ALTACE [Concomitant]
     Indication: HYPERTENSION
     Dosage: UNK
  2. TOVIAZ [Suspect]
     Dosage: 8 MG, 1X/DAY
     Dates: start: 20101220, end: 20110109
  3. METOPROLOL [Concomitant]
     Indication: HYPERTENSION
     Dosage: UNK
  4. NORVASC [Concomitant]
     Indication: HYPERTENSION
     Dosage: UNK

REACTIONS (2)
  - CONSTIPATION [None]
  - DRUG INEFFECTIVE [None]
